FAERS Safety Report 5647066-9 (Version None)
Quarter: 2008Q1

REPORT INFORMATION
  Report Type: 
  Country: None (occurrence: None)
  Receive Date: 20080131
  Receipt Date: 20071205
  Transmission Date: 20080703
  Serious: No
  Sender: FDA-Public Use
  Company Number: 163-21880-07120452

PATIENT
  Age: 59 Year
  Sex: Male

DRUGS (2)
  1. REVLIMID [Suspect]
     Indication: MULTIPLE MYELOMA
     Dosage: 5 MG, DAILY X 28 DAYS, ORAL ; 5 - 10 MG, DAILY, ORAL
     Route: 048
     Dates: start: 20061004, end: 20070101
  2. REVLIMID [Suspect]
     Indication: MULTIPLE MYELOMA
     Dosage: 5 MG, DAILY X 28 DAYS, ORAL ; 5 - 10 MG, DAILY, ORAL
     Route: 048
     Dates: start: 20070124

REACTIONS (1)
  - INFLUENZA [None]
